FAERS Safety Report 5215072-4 (Version None)
Quarter: 2006Q4

REPORT INFORMATION
  Report Type: 
  Country: None (occurrence: None)
  Receive Date: 20061107
  Receipt Date: 20060622
  Transmission Date: 20070319
  Serious: No
  Sender: FDA-Public Use
  Company Number: 200611857BWH

PATIENT
  Age: 70 Year
  Sex: Male

DRUGS (4)
  1. LEVITRA [Suspect]
     Indication: ERECTILE DYSFUNCTION
     Dosage: ONCE, ORAL
     Route: 048
     Dates: start: 20060326
  2. NORVASC [Concomitant]
  3. TENORMIN [Concomitant]
  4. GLUCOTROL XL [Concomitant]

REACTIONS (5)
  - BLOOD PRESSURE DECREASED [None]
  - EYE IRRITATION [None]
  - EYE PAIN [None]
  - FLUSHING [None]
  - VISUAL DISTURBANCE [None]
